FAERS Safety Report 6099220-2 (Version None)
Quarter: 2009Q1

REPORT INFORMATION
  Report Type: 
  Country: None (occurrence: None)
  Receive Date: 20090225
  Receipt Date: 20090225
  Transmission Date: 20090719
  Serious: Yes (Other)
  Sender: FDA-Public Use
  Company Number: None

PATIENT
  Age: 60 Year
  Sex: Male
  Weight: 121.1104 kg

DRUGS (1)
  1. AZITHROMYCIN [Suspect]
     Indication: BRONCHITIS
     Dosage: 2CAPS1ST DAY, THEN 1 CAP DAILY X 5 DAYS PO
     Route: 048
     Dates: start: 20090223, end: 20090227

REACTIONS (2)
  - DIARRHOEA [None]
  - NAUSEA [None]
